FAERS Safety Report 16371033 (Version 2)
Quarter: 2019Q2

REPORT INFORMATION
  Report Type: Report from Study
  Country: CA (occurrence: CA)
  Receive Date: 20190530
  Receipt Date: 20190604
  Transmission Date: 20190711
  Serious: No
  Sender: FDA-Public Use
  Company Number: CA-ROCHE-2328521

PATIENT
  Sex: Female

DRUGS (4)
  1. GABAPENTIN. [Concomitant]
     Active Substance: GABAPENTIN
     Indication: MUSCLE SPASTICITY
     Dosage: STARTED 3 YRS AGO ;ONGOING: YES
     Route: 065
  2. OCREVUS [Suspect]
     Active Substance: OCRELIZUMAB
     Indication: RELAPSING-REMITTING MULTIPLE SCLEROSIS
     Dosage: 300 MG AT DAY 0 AND 14, THEN 600 MG EVERY 6 MONTH
     Route: 042
     Dates: start: 20180531
  3. TOLTERODINE [Concomitant]
     Active Substance: TOLTERODINE
     Dosage: STARTED 3-4 YRS ;ONGOING: YES
     Route: 065
  4. FAMPYRA [Concomitant]
     Active Substance: DALFAMPRIDINE
     Dosage: BEEN USING IT FOR 3-4 YEARS ;ONGOING: YES
     Route: 065

REACTIONS (1)
  - Cystitis [Recovering/Resolving]
